FAERS Safety Report 9706478 (Version 4)
Quarter: 2014Q1

REPORT INFORMATION
  Report Type: Spontaneous
  Country: JP (occurrence: JP)
  Receive Date: 20131125
  Receipt Date: 20140209
  Transmission Date: 20141002
  Serious: Yes (Hospitalization)
  Sender: FDA-Public Use
  Company Number: JP-ROCHE-1305609

PATIENT
  Age: 61 Year
  Sex: Female

DRUGS (5)
  1. BONVIVA [Suspect]
     Indication: PRODUCT USED FOR UNKNOWN INDICATION
     Route: 042
     Dates: start: 20130917, end: 20131015
  2. DIHYDROERGOTOXINE MESILATE [Concomitant]
     Route: 048
     Dates: start: 20110816
  3. TOCOPHEROL NICOTINATE [Concomitant]
     Dosage: DRUG REPORTED AS : NE-SOFT
     Route: 048
     Dates: start: 20110816
  4. ENALAPRIL MALEATE [Concomitant]
     Dosage: DRUG REPORTED AS : CALNATE
     Route: 048
     Dates: start: 20091109
  5. BEZATOL SR [Concomitant]
     Route: 048
     Dates: start: 20130820

REACTIONS (1)
  - Paraplegia [Not Recovered/Not Resolved]
